FAERS Safety Report 21754239 (Version 1)
Quarter: 2022Q4

REPORT INFORMATION
  Report Type: Spontaneous
  Country: US (occurrence: None)
  Receive Date: 20221219
  Receipt Date: 20221219
  Transmission Date: 20230113
  Serious: Yes (Hospitalization)
  Sender: FDA-Public Use
  Company Number: None

PATIENT
  Age: 80 Year
  Sex: Female
  Weight: 76.2 kg

DRUGS (12)
  1. IBRANCE [Suspect]
     Active Substance: PALBOCICLIB
     Indication: Breast cancer female
     Dosage: FREQUENCY : DAILY;?OTHER ROUTE : OR 21D ON 7D OFF;?
     Route: 050
     Dates: start: 202205
  2. ACETAMINOPHEN [Concomitant]
     Active Substance: ACETAMINOPHEN
  3. ARIMIDEX [Concomitant]
     Active Substance: ANASTROZOLE
  4. DICLOFENAC [Concomitant]
     Active Substance: DICLOFENAC
  5. DILTIAZEM [Concomitant]
     Active Substance: DILTIAZEM
  6. ELIQUIS [Concomitant]
     Active Substance: APIXABAN
  7. Hydrocodone and Acetaminophen [Concomitant]
  8. LISINOPRIL [Concomitant]
     Active Substance: LISINOPRIL
  9. PIOGLITAZONE [Concomitant]
     Active Substance: PIOGLITAZONE
  10. TOUJEO MAX [Concomitant]
     Active Substance: INSULIN GLARGINE
  11. VITAMIN B12 [Concomitant]
     Active Substance: CYANOCOBALAMIN
  12. VITAMIN D3 [Concomitant]
     Active Substance: CHOLECALCIFEROL

REACTIONS (1)
  - Diarrhoea [None]

NARRATIVE: CASE EVENT DATE: 20221205
